FAERS Safety Report 24429190 (Version 1)
Quarter: 2024Q4

REPORT INFORMATION
  Report Type: Spontaneous
  Country: ES (occurrence: ES)
  Receive Date: 20241011
  Receipt Date: 20241011
  Transmission Date: 20250115
  Serious: Yes (Other)
  Sender: TEVA
  Company Number: None

PATIENT
  Age: 61 Year
  Sex: Male
  Weight: 80 kg

DRUGS (2)
  1. QUETIAPINE [Suspect]
     Active Substance: QUETIAPINE
     Indication: Insomnia
     Dosage: ONCE, AT NIGHT JUST BEFORE GOING TO SLEEP, 60
     Route: 048
     Dates: start: 20190701, end: 20220309
  2. VALPROIC ACID [Suspect]
     Active Substance: VALPROIC ACID
     Indication: Bipolar I disorder
     Dosage: 1000 MG DIVIDED INTO TWO TABLETS TWICE A DAY OF 500 MG EACH, IN THE MORNING AND IN THE EVENING......
     Route: 048
     Dates: start: 20220128

REACTIONS (1)
  - Insomnia [Recovered/Resolved]

NARRATIVE: CASE EVENT DATE: 20220128
